FAERS Safety Report 10073901 (Version 1)
Quarter: 2014Q2

REPORT INFORMATION
  Report Type: Spontaneous
  Country: US (occurrence: US)
  Receive Date: 20140412
  Receipt Date: 20140412
  Transmission Date: 20141212
  Serious: No
  Sender: FDA-Public Use
  Company Number: US-009507513-1403USA013009

PATIENT
  Sex: Female
  Weight: 52.15 kg

DRUGS (3)
  1. NEXPLANON [Suspect]
     Indication: CONTRACEPTION
     Dosage: 1 ROD/3 YEARS INSERT LEFT ARM
     Route: 059
     Dates: start: 201401
  2. ATENOLOL [Concomitant]
     Dosage: 50 MG, BID
  3. BUSPAR [Concomitant]
     Dosage: 10 MG, BID

REACTIONS (1)
  - Haemorrhage [Not Recovered/Not Resolved]
